FAERS Safety Report 6731298-2 (Version None)
Quarter: 2010Q2

REPORT INFORMATION
  Report Type: 
  Country: None (occurrence: None)
  Receive Date: 20100518
  Receipt Date: 20100511
  Transmission Date: 20101027
  Serious: Yes (Other)
  Sender: FDA-Public Use
  Company Number: FR-MERCK-1003FRA00049

PATIENT
  Age: 11 Year
  Sex: Female
  Weight: 28 kg

DRUGS (2)
  1. SINGULAIR [Suspect]
     Indication: ASTHMA
     Route: 048
     Dates: start: 20050301, end: 20090201
  2. FLUTICASONE PROPIONATE [Concomitant]
     Indication: ASTHMA
     Route: 055

REACTIONS (1)
  - EPILEPSY [None]
